FAERS Safety Report 20505719 (Version 1)
Quarter: 2022Q1

REPORT INFORMATION
  Report Type: Spontaneous
  Country: US (occurrence: None)
  Receive Date: 20220223
  Receipt Date: 20220223
  Transmission Date: 20220424
  Serious: No
  Sender: FDA-Public Use
  Company Number: US-Shield TX (UK) Ltd-US-STX-22-00001

PATIENT
  Sex: Female

DRUGS (1)
  1. ACCRUFER [Suspect]
     Active Substance: FERRIC MALTOL
     Indication: Blood iron decreased
     Route: 048
     Dates: start: 202111, end: 20220120

REACTIONS (3)
  - Hypersensitivity [Recovered/Resolved]
  - Contusion [Unknown]
  - Rash [Recovered/Resolved]
